FAERS Safety Report 7275316-4 (Version None)
Quarter: 2011Q1

REPORT INFORMATION
  Report Type: 
  Country: None (occurrence: None)
  Receive Date: 20110204
  Receipt Date: 20110126
  Transmission Date: 20110831
  Serious: Yes (Other)
  Sender: FDA-Public Use
  Company Number: PHHY2011CA06639

PATIENT
  Sex: Female

DRUGS (2)
  1. ACLASTA [Suspect]
     Dosage: UNK
     Dates: start: 20100125
  2. ACLASTA [Suspect]
     Dosage: UNK
     Dates: start: 20110126

REACTIONS (1)
  - NEUROGENIC SHOCK [None]
